FAERS Safety Report 13927180 (Version 1)
Quarter: 2017Q3

REPORT INFORMATION
  Report Type: Other
  Country: None (occurrence: US)
  Receive Date: 20170831
  Receipt Date: 20170831
  Transmission Date: 20171127
  Serious: Yes (Hospitalization, Other)
  Sender: FDA-Public Use
  Company Number: US-GUTHY-RENKER LLC-2025419

PATIENT
  Age: 53 Year
  Sex: Female

DRUGS (2)
  1. IT COSMETICS BYE BYE FOUNDATION WITH SPF 50+ [Suspect]
     Active Substance: TITANIUM DIOXIDE\ZINC OXIDE
     Indication: PROPHYLAXIS AGAINST SOLAR RADIATION
     Route: 061
     Dates: start: 20170814, end: 20170815
  2. VITAMIN B12, IRON, INHALER FOR ASTHMA, METOPROLOL XL, EPIPEN PRN. [Concomitant]

REACTIONS (4)
  - Angioedema [Recovering/Resolving]
  - Lip swelling [None]
  - Throat tightness [None]
  - Eye swelling [None]

NARRATIVE: CASE EVENT DATE: 20170815
